FAERS Safety Report 4793829-1 (Version None)
Quarter: 2005Q4

REPORT INFORMATION
  Report Type: 
  Country: None (occurrence: None)
  Receive Date: 20051011
  Receipt Date: 20050921
  Transmission Date: 20060501
  Serious: Yes (Hospitalization)
  Sender: FDA-Public Use
  Company Number: FR-SANOFI-SYNTHELABO-A02200502483

PATIENT
  Age: 70 Year
  Sex: Male

DRUGS (1)
  1. PLAVIX [Suspect]
     Indication: ARTERIOSCLEROSIS
     Route: 048
     Dates: start: 20050701, end: 20050101

REACTIONS (5)
  - CYANOSIS [None]
  - DIALYSIS [None]
  - FAT EMBOLISM [None]
  - PAIN IN EXTREMITY [None]
  - RENAL FAILURE [None]
